FAERS Safety Report 5598540-5 (Version None)
Quarter: 2007Q4

REPORT INFORMATION
  Report Type: 
  Country: None (occurrence: None)
  Receive Date: 20071226
  Receipt Date: 20071012
  Transmission Date: 20080405
  Serious: No
  Sender: FDA-Public Use
  Company Number: 2006PV026981

PATIENT
  Age: 50 Year
  Sex: Male

DRUGS (4)
  1. SYMLIN [Suspect]
     Indication: TYPE 1 DIABETES MELLITUS
     Dosage: 60 MCG, TID
     Dates: start: 20050907
  2. INSULIN [Concomitant]
  3. LISINOPRIL [Concomitant]
  4. ZOCOR [Concomitant]

REACTIONS (3)
  - NAUSEA [None]
  - VOMITING [None]
  - WRONG DRUG ADMINISTERED [None]
